FAERS Safety Report 5017596-1 (Version None)
Quarter: 2006Q2

REPORT INFORMATION
  Report Type: 
  Country: None (occurrence: None)
  Receive Date: 20060601
  Receipt Date: 20060601
  Transmission Date: 20061013
  Serious: No
  Sender: FDA-Public Use
  Company Number: None

PATIENT
  Age: 88 Year
  Sex: Male

DRUGS (1)
  1. VECURONIUM   10 MG  BEDFORD LABS [Suspect]
     Indication: INTUBATION

REACTIONS (1)
  - PHARMACEUTICAL PRODUCT COMPLAINT [None]
